FAERS Safety Report 9782542 (Version 2)
Quarter: 2013Q4

REPORT INFORMATION
  Report Type: Spontaneous
  Country: JP (occurrence: JP)
  Receive Date: 20131226
  Receipt Date: 20131226
  Transmission Date: 20140711
  Serious: Yes (Other)
  Sender: FDA-Public Use
  Company Number: PHHY2013JP145707

PATIENT
  Age: 66 Year
  Sex: Female

DRUGS (2)
  1. CICLOSPORIN [Suspect]
  2. PREDNISOLONE [Suspect]

REACTIONS (3)
  - Dermatomyositis [Unknown]
  - Mycobacterium marinum infection [Recovered/Resolved]
  - Erythema [Unknown]
